FAERS Safety Report 9563535 (Version 1)
Quarter: 2013Q1

REPORT INFORMATION
  Report Type: Spontaneous
  Country: US (occurrence: None)
  Receive Date: 20121218
  Receipt Date: 20121218
  Transmission Date: 20140127
  Serious: Yes (Other)
  Sender: FDA-Public Use
  Company Number: PHEH2011US08187

PATIENT
  Age: 68 Year
  Sex: Female
  Weight: 63 kg

DRUGS (16)
  1. ZOMETA (ZOLEDRONATE) UNKNOWN [Suspect]
     Indication: METASTASES TO BONE
     Dosage: 4 MG, QMO, INTRAVENOUS
     Route: 042
     Dates: start: 201101
  2. VASLODEX (VASLODEX) [Concomitant]
  3. HERBALIFE PRODUCTS (HERBAL EXTRACT NOS) [Concomitant]
  4. COQ10 (UBIDECARENONE) CAPSULE [Concomitant]
  5. FLORADIX (FERROUS GLUCONATE, FOLIC ACID, NICOTINAMIDE, RIBOFLAVIN, THIAMINE HYDROCHLORIDE) [Concomitant]
  6. HOXSEY TONIC [Concomitant]
  7. MONTANA YEW CAPS (MONTANA YEW CAPS) CAPSULE [Concomitant]
  8. MULTIVITAMIN (VITAMINS NOS) [Concomitant]
  9. MYOMIN [Concomitant]
  10. INOSINE PRANOBEX (INOSINE PRANOBEX) [Concomitant]
  11. PROPANOLOL (PROPRANOLOL) [Concomitant]
  12. FOD [Concomitant]
  13. SALMON OIL [Concomitant]
  14. VITAMIN C [Concomitant]
  15. WOBENZYM (ENZYMES NOS) [Concomitant]
  16. CALCIUM (CALCIUM) [Concomitant]

REACTIONS (5)
  - Neoplasm malignant [None]
  - Pain in jaw [None]
  - Tooth abscess [None]
  - Tooth disorder [None]
  - Neoplasm progression [None]
